FAERS Safety Report 18016054 (Version 1)
Quarter: 2020Q3

REPORT INFORMATION
  Report Type: Spontaneous
  Country: IT (occurrence: IT)
  Receive Date: 20200713
  Receipt Date: 20200713
  Transmission Date: 20201103
  Serious: Yes (Other)
  Sender: FDA-Public Use
  Company Number: IT-PURDUE PHARMA-GBR-2020-0077636

PATIENT
  Age: 18 Month
  Sex: Female

DRUGS (16)
  1. LEVETIRACETAM. [Suspect]
     Active Substance: LEVETIRACETAM
     Indication: EPILEPTIC ENCEPHALOPATHY
     Dosage: 10 MG/KG, DAILY
     Route: 065
  2. VIGABATRIN. [Suspect]
     Active Substance: VIGABATRIN
     Indication: EPILEPTIC ENCEPHALOPATHY
     Dosage: UNK [RECEIVED DURING THE FIRST MONTHS OF LIFE]
     Route: 065
  3. ADRENOCORTICOTROPHIC HORMONE [Suspect]
     Active Substance: CORTICOTROPIN
     Indication: EPILEPTIC ENCEPHALOPATHY
     Dosage: UNK [RECEIVED DURING THE FIRST MONTHS OF LIFE]
     Route: 065
  4. DEXMEDETOMIDINE. [Suspect]
     Active Substance: DEXMEDETOMIDINE
     Indication: DYSTONIA
     Dosage: 2.5 MCG/KG, UNK [PER DOSE AT HOME; VIA A MUCOSAL ATOMIZATION DEVICE]
     Route: 045
  5. GABAPENTIN. [Suspect]
     Active Substance: GABAPENTIN
     Indication: DYSTONIA
     Dosage: 24 MG/KG, DAILY
     Route: 065
  6. ACETAMINOPHEN. [Suspect]
     Active Substance: ACETAMINOPHEN
     Indication: PAIN
     Dosage: 15 MG/KG, UNK
     Route: 048
  7. FENTANYL. [Suspect]
     Active Substance: FENTANYL
     Indication: PAIN
     Dosage: 2 MCG/KG, UNK
     Route: 045
  8. TETRABENAZINE. [Suspect]
     Active Substance: TETRABENAZINE
     Indication: DYSTONIA
     Dosage: 7.5 MG/KG, DAILY
     Route: 065
  9. BOTULINUM TOXIN [Concomitant]
     Active Substance: BOTULINUM TOXIN NOS
     Indication: DYSTONIA
     Dosage: 200 IU, UNK [IN CERVICODORSAL REGION]
     Route: 048
  10. BACLOFEN. [Suspect]
     Active Substance: BACLOFEN
     Indication: DYSTONIA
     Dosage: 1.8 MG/KG, DAILY
     Route: 065
  11. MORPHINE SULFATE. [Suspect]
     Active Substance: MORPHINE SULFATE
     Indication: PAIN
     Dosage: UNK [0.3?0.4 MG/KG/DOSE]
     Route: 048
  12. IBUPROFEN. [Suspect]
     Active Substance: IBUPROFEN
     Indication: PAIN
     Dosage: 10 MG/KG, UNK
     Route: 048
  13. DEXMEDETOMIDINE. [Suspect]
     Active Substance: DEXMEDETOMIDINE
     Dosage: 2.7 MCG/KG, UNK [VIA A MUCOSAL ATOMIZATION DEVICE]
     Route: 045
  14. SODIUM VALPROATE [Suspect]
     Active Substance: VALPROATE SODIUM
     Indication: EPILEPTIC ENCEPHALOPATHY
     Dosage: 50 MG/KG, DAILY
     Route: 065
  15. PHENOBARBITAL. [Suspect]
     Active Substance: PHENOBARBITAL
     Indication: EPILEPTIC ENCEPHALOPATHY
     Dosage: 5 MG/KG, DAILY
     Route: 065
  16. LORAZEPAM. [Suspect]
     Active Substance: LORAZEPAM
     Indication: DYSTONIA
     Dosage: 0.05 MG/KG, DOSE
     Route: 065

REACTIONS (2)
  - Off label use [Unknown]
  - Drug ineffective [Unknown]
